FAERS Safety Report 24399267 (Version 1)
Quarter: 2024Q4

REPORT INFORMATION
  Report Type: Spontaneous
  Country: JP (occurrence: JP)
  Receive Date: 20241004
  Receipt Date: 20241004
  Transmission Date: 20250115
  Serious: Yes (Other)
  Sender: ANI
  Company Number: JP-ANIPHARMA-2024-JP-000277

PATIENT
  Age: 5 Month
  Sex: Female

DRUGS (4)
  1. CORTICOTROPIN [Suspect]
     Active Substance: CORTICOTROPIN
     Indication: Infantile spasms
     Dosage: 0.0125 MG/KG/DAY
  2. ZONISAMIDE [Suspect]
     Active Substance: ZONISAMIDE
     Indication: Infantile spasms
     Dosage: 120 MG DAILY
  3. PERAMPANEL [Suspect]
     Active Substance: PERAMPANEL
     Indication: Infantile spasms
  4. CLONAZEPAM [Suspect]
     Active Substance: CLONAZEPAM
     Indication: Seizure

REACTIONS (1)
  - Rhabdomyolysis [Unknown]
